FAERS Safety Report 5577987-7 (Version None)
Quarter: 2007Q4

REPORT INFORMATION
  Report Type: 
  Country: None (occurrence: None)
  Receive Date: 20071231
  Receipt Date: 20071221
  Transmission Date: 20080405
  Serious: Yes (Other)
  Sender: FDA-Public Use
  Company Number: US-ROCHE-525416

PATIENT
  Age: 46 Year
  Sex: Male

DRUGS (1)
  1. PEGASYS [Suspect]
     Indication: HEPATITIS B
     Dosage: MONOTHERAPY: 30-40 WEEK DURATION, DOSE NOT REPORTED
     Route: 065
     Dates: start: 20070101, end: 20070914

REACTIONS (1)
  - GUILLAIN-BARRE SYNDROME [None]
